FAERS Safety Report 25515435 (Version 2)
Quarter: 2025Q3

REPORT INFORMATION
  Report Type: Spontaneous
  Country: US (occurrence: US)
  Receive Date: 20250704
  Receipt Date: 20250818
  Transmission Date: 20251021
  Serious: No
  Sender: BOEHRINGER INGELHEIM
  Company Number: US-Komodo Health-a23aa000008Xvm5AAC

PATIENT
  Sex: Male

DRUGS (1)
  1. CYLTEZO [Suspect]
     Active Substance: ADALIMUMAB-ADBM
     Indication: Rheumatoid arthritis
     Dosage: 40MG/0.8ML
     Dates: start: 20250628

REACTIONS (3)
  - Device malfunction [Unknown]
  - Haemorrhage [Recovered/Resolved]
  - Needle issue [Unknown]
